FAERS Safety Report 9832126 (Version 1)
Quarter: 2014Q1

REPORT INFORMATION
  Report Type: Report from Study
  Country: US (occurrence: US)
  Receive Date: 20140121
  Receipt Date: 20140121
  Transmission Date: 20141002
  Serious: Yes (Hospitalization)
  Sender: FDA-Public Use
  Company Number: US-JNJFOC-20140108380

PATIENT
  Age: 18 Year
  Sex: Female
  Weight: 64.3 kg

DRUGS (7)
  1. REMICADE [Suspect]
     Indication: INFLAMMATORY BOWEL DISEASE
     Route: 042
     Dates: start: 20081202
  2. HUMIRA [Concomitant]
     Route: 065
     Dates: start: 20090903
  3. ANTIBIOTICS [Concomitant]
     Indication: INFLAMMATORY BOWEL DISEASE
     Route: 065
  4. MULTIVITAMINS [Concomitant]
     Route: 065
  5. CALCIUM CARBONATE [Concomitant]
     Route: 065
  6. LOMOTIL [Concomitant]
     Route: 065
  7. LOPERAMIDE [Concomitant]
     Route: 065

REACTIONS (1)
  - Hyponatraemia [Recovered/Resolved]
